FAERS Safety Report 11184773 (Version 2)
Quarter: 2015Q2

REPORT INFORMATION
  Report Type: Spontaneous
  Country: JP (occurrence: JP)
  Receive Date: 20150612
  Receipt Date: 20150629
  Transmission Date: 20150821
  Serious: Yes (Other)
  Sender: FDA-Public Use
  Company Number: JP-BAUSCH-BL-2015-014755

PATIENT
  Age: 68 Year
  Sex: Female

DRUGS (1)
  1. ZOVIRAX [Suspect]
     Active Substance: ACYCLOVIR
     Indication: OPHTHALMIC HERPES SIMPLEX
     Route: 031

REACTIONS (3)
  - Retinitis [Not Recovered/Not Resolved]
  - Corneal opacity [Unknown]
  - Corneal disorder [Not Recovered/Not Resolved]

NARRATIVE: CASE EVENT DATE: 20150529
